FAERS Safety Report 10332671 (Version 1)
Quarter: 2014Q3

REPORT INFORMATION
  Report Type: Spontaneous
  Country: US (occurrence: US)
  Receive Date: 20140722
  Receipt Date: 20140722
  Transmission Date: 20150326
  Serious: No
  Sender: FDA-Public Use
  Company Number: US-ASTRAZENECA-2014SE09615

PATIENT
  Age: 9 Year
  Sex: Male
  Weight: 37.2 kg

DRUGS (1)
  1. SEROQUEL XR [Suspect]
     Active Substance: QUETIAPINE FUMARATE
     Indication: AGGRESSION
     Route: 048

REACTIONS (2)
  - Akathisia [Unknown]
  - Off label use [Unknown]
